FAERS Safety Report 10356396 (Version 1)
Quarter: 2014Q3

REPORT INFORMATION
  Report Type: Spontaneous
  Country: SE (occurrence: SE)
  Receive Date: 20140801
  Receipt Date: 20140801
  Transmission Date: 20150326
  Serious: Yes (Hospitalization, Other)
  Sender: FDA-Public Use
  Company Number: SE-UCBSA-2014007022

PATIENT
  Age: 45 Year
  Sex: Male

DRUGS (3)
  1. CIMZIA [Suspect]
     Active Substance: CERTOLIZUMAB PEGOL
     Indication: RHEUMATOID ARTHRITIS
     Dosage: DOSE UNKNOWN (DOSE STRENGTH:200 MG), PFS
     Dates: start: 201311, end: 201405
  2. ORUDIS [Suspect]
     Active Substance: KETOPROFEN
     Indication: RHEUMATOID ARTHRITIS
     Dosage: DOSE UNKNOWN; STRENGTH: 200 MG
     Dates: start: 2010, end: 201405
  3. ORUDIS [Concomitant]
     Active Substance: KETOPROFEN
     Dosage: 2,5 % GEL

REACTIONS (3)
  - Myocardial infarction [Unknown]
  - Left ventricular failure [Not Recovered/Not Resolved]
  - Ischaemic cardiomyopathy [Not Recovered/Not Resolved]

NARRATIVE: CASE EVENT DATE: 201404
